FAERS Safety Report 16668211 (Version 2)
Quarter: 2019Q3

REPORT INFORMATION
  Report Type: Report from Study
  Country: FR (occurrence: FR)
  Receive Date: 20190805
  Receipt Date: 20190820
  Transmission Date: 20191004
  Serious: Yes (Death, Hospitalization, Other)
  Sender: FDA-Public Use
  Company Number: FR-JAZZ-2019-FR-010536

PATIENT

DRUGS (2)
  1. URSODEOXYCHOLIC ACID [Concomitant]
     Active Substance: URSODIOL
     Indication: PROPHYLAXIS
  2. DEFITELIO [Suspect]
     Active Substance: DEFIBROTIDE SODIUM
     Indication: PROPHYLAXIS
     Dosage: 17.7 MG/KG, QD
     Route: 042
     Dates: start: 20141020

REACTIONS (5)
  - Haemorrhage [Recovered/Resolved]
  - Fungal infection [Recovered/Resolved]
  - Underdose [Fatal]
  - Product use in unapproved indication [Fatal]
  - Septic shock [Fatal]

NARRATIVE: CASE EVENT DATE: 20141020
